FAERS Safety Report 7517986-9 (Version None)
Quarter: 2011Q2

REPORT INFORMATION
  Report Type: 
  Country: None (occurrence: None)
  Receive Date: 20110531
  Receipt Date: 20110531
  Transmission Date: 20111010
  Serious: Yes (Other)
  Sender: FDA-Public Use
  Company Number: None

PATIENT
  Age: 51 Year
  Sex: Male
  Weight: 83.9154 kg

DRUGS (2)
  1. SUSTANOLDIRECT PERPHARMA LLC [Suspect]
     Indication: ERECTILE DYSFUNCTION
     Dosage: NICKEL-SIZED OR MORE DAILY TRANSDERMAL
     Route: 062
     Dates: start: 20110329, end: 20110406
  2. BIOSCIENT LLC AMRAHPREP LLC [Suspect]
     Indication: ERECTILE DYSFUNCTION
     Dosage: NICKEL SIZE DAILY TRANSDERMAL
     Route: 062

REACTIONS (2)
  - URTICARIA [None]
  - DIZZINESS [None]
